FAERS Safety Report 25774989 (Version 1)
Quarter: 2025Q3

REPORT INFORMATION
  Report Type: Spontaneous
  Country: US (occurrence: None)
  Receive Date: 20250908
  Receipt Date: 20250908
  Transmission Date: 20251021
  Serious: Yes (Hospitalization)
  Sender: FDA-CTU
  Company Number: None

PATIENT
  Sex: Male
  Weight: 82.35 kg

DRUGS (5)
  1. OPSUMIT [Suspect]
     Active Substance: MACITENTAN
     Indication: Pulmonary arterial hypertension
     Dosage: 10 MG DAILY ORL
     Route: 048
     Dates: start: 20250502
  2. WINREVAIR [Suspect]
     Active Substance: SOTATERCEPT-CSRK
     Indication: Pulmonary arterial hypertension
     Dosage: 0.5 ML EVERY 3 WEEKS SUBCUTANEOUS
     Route: 058
     Dates: start: 20240610
  3. VANCOMYCIN [Suspect]
     Active Substance: VANCOMYCIN
  4. REMODULIN [Concomitant]
     Active Substance: TREPROSTINIL
  5. STERILE DILUENT FOR REMODULIN [Concomitant]
     Active Substance: WATER

REACTIONS (3)
  - Clostridium difficile infection [None]
  - Oxygen saturation decreased [None]
  - Aspiration [None]
